FAERS Safety Report 10884517 (Version 1)
Quarter: 2015Q1

REPORT INFORMATION
  Report Type: Spontaneous
  Country: US (occurrence: None)
  Receive Date: 20150227
  Receipt Date: 20150227
  Transmission Date: 20150721
  Serious: No
  Sender: FDA-Public Use
  Company Number: None

PATIENT
  Age: 75 Year
  Sex: Female
  Weight: 68.04 kg

DRUGS (8)
  1. KIRKLAND MATURE MULTIVITAMINS [Concomitant]
  2. TOVIAZ [Suspect]
     Active Substance: FESOTERODINE FUMARATE
     Indication: URINARY INCONTINENCE
     Dosage: 1 PILL
     Route: 048
     Dates: end: 20141228
  3. VITAMIN B6 [Concomitant]
     Active Substance: PYRIDOXINE HYDROCHLORIDE
  4. OMEPRAZOLE. [Concomitant]
     Active Substance: OMEPRAZOLE
  5. EVISTA [Concomitant]
     Active Substance: RALOXIFENE HYDROCHLORIDE
  6. PREVERSION [Concomitant]
  7. GLUCOSAMINE PLUS [Concomitant]
  8. VITAMIN D3 [Concomitant]
     Active Substance: CHOLECALCIFEROL

REACTIONS (13)
  - Oral neoplasm benign [None]
  - Gingival disorder [None]
  - Choking [None]
  - Dry mouth [None]
  - Somnolence [None]
  - Pollakiuria [None]
  - Dyspnoea [None]
  - Vision blurred [None]
  - Middle insomnia [None]
  - Dizziness [None]
  - Fatigue [None]
  - Urinary incontinence [None]
  - Dysuria [None]

NARRATIVE: CASE EVENT DATE: 20140227
